FAERS Safety Report 4611558-1 (Version None)
Quarter: 2005Q2

REPORT INFORMATION
  Report Type: 
  Country: None (occurrence: None)
  Receive Date: 20050311
  Receipt Date: 20050112
  Transmission Date: 20051028
  Serious: No
  Sender: FDA-Public Use
  Company Number: 2005-BP-00570BP

PATIENT
  Age: 77 Year
  Sex: Male

DRUGS (12)
  1. SPIRIVA [Suspect]
     Indication: CHRONIC OBSTRUCTIVE PULMONARY DISEASE
     Dosage: 18 MCG (18 MCG, 1 CAPSULE QD), IH
     Route: 055
     Dates: start: 20040101
  2. SPIRIVA [Suspect]
     Indication: EMPHYSEMA
     Dosage: 18 MCG (18 MCG, 1 CAPSULE QD), IH
     Route: 055
     Dates: start: 20040101
  3. SPIRIVA [Suspect]
  4. OMEPRAZOLE [Concomitant]
  5. BEXTRA (VADECOXIB) [Concomitant]
  6. PLAVIX [Concomitant]
  7. TERAZOSIN (TERAZOSIN) [Concomitant]
  8. ATENOLOL [Concomitant]
  9. ZOCOR [Concomitant]
  10. PAROXETINE HCL [Concomitant]
  11. ACETYLSALICYLIC ACID SRT [Concomitant]
  12. NASONEX (MOMETASON FUROATE) [Concomitant]

REACTIONS (2)
  - DRUG INEFFECTIVE [None]
  - NASOPHARYNGITIS [None]
